FAERS Safety Report 6785789-9 (Version None)
Quarter: 2010Q2

REPORT INFORMATION
  Report Type: 
  Country: None (occurrence: None)
  Receive Date: 20100622
  Receipt Date: 20100622
  Transmission Date: 20101027
  Serious: Yes (Death, Hospitalization)
  Sender: FDA-Public Use
  Company Number: None

PATIENT
  Age: 50 Year
  Sex: Female
  Weight: 95.2 kg

DRUGS (9)
  1. COUMADIN [Suspect]
     Indication: BASILAR ARTERY STENOSIS
     Dosage: 7.5 MG/100 MG DAILY/BID PO CHRONIC
     Route: 048
  2. PLAVIX [Suspect]
     Indication: CORONARY ARTERY DISEASE
     Dosage: 75 MG DAILY PO CHRONIC
     Route: 048
  3. LISINOPRIL [Concomitant]
  4. HYDROCHLOROTHIAZIDE [Concomitant]
  5. CLONIDINE [Concomitant]
  6. PRAVASTATIN [Concomitant]
  7. VICODIN [Concomitant]
  8. AMLODIPINE [Concomitant]
  9. METFORMIN HCL [Concomitant]

REACTIONS (4)
  - BLOOD PRESSURE INCREASED [None]
  - HAEMORRHAGE INTRACRANIAL [None]
  - HYDROCEPHALUS [None]
  - UNRESPONSIVE TO STIMULI [None]
